FAERS Safety Report 6142084-9 (Version None)
Quarter: 2009Q1

REPORT INFORMATION
  Report Type: 
  Country: None (occurrence: None)
  Receive Date: 20090331
  Receipt Date: 20090331
  Transmission Date: 20090719
  Serious: Yes (Other)
  Sender: FDA-Public Use
  Company Number: None

PATIENT
  Age: 25 Year
  Sex: Female
  Weight: 62.5964 kg

DRUGS (1)
  1. METRONIDAZOLE [Suspect]
     Indication: VAGINAL INFECTION
     Dosage: 1 PILL TWICE DAILY PO
     Route: 048
     Dates: start: 20090323, end: 20090324

REACTIONS (4)
  - DEHYDRATION [None]
  - DRUG EXPOSURE DURING PREGNANCY [None]
  - PRODUCT QUALITY ISSUE [None]
  - VOMITING [None]
